FAERS Safety Report 8157782-5 (Version None)
Quarter: 2012Q1

REPORT INFORMATION
  Report Type: 
  Country: None (occurrence: None)
  Receive Date: 20120222
  Receipt Date: 20120216
  Transmission Date: 20120608
  Serious: Yes (Hospitalization, Other)
  Sender: FDA-Public Use
  Company Number: JP-ROCHE-1032669

PATIENT
  Sex: Female
  Weight: 42 kg

DRUGS (10)
  1. ALIMTA [Concomitant]
     Indication: LUNG ADENOCARCINOMA RECURRENT
     Route: 041
     Dates: start: 20100414, end: 20100414
  2. CODEINE PHOSPHATE [Concomitant]
     Indication: COUGH
     Dosage: AT ANY TIME
     Route: 048
     Dates: start: 20100209
  3. MAGNESIUM OXIDE [Concomitant]
     Indication: CONSTIPATION
     Dosage: AT ANY TIME
     Route: 048
     Dates: start: 20100209
  4. MAO-BUSHI-SAISHIN-TO [Concomitant]
     Indication: MALAISE
     Route: 048
     Dates: start: 20100209
  5. RESPLEN [Concomitant]
     Indication: COUGH
     Route: 048
     Dates: start: 20100209
  6. AVASTIN [Suspect]
     Indication: LUNG ADENOCARCINOMA RECURRENT
     Route: 041
     Dates: start: 20100414, end: 20100414
  7. TARCEVA [Suspect]
     Route: 048
     Dates: start: 20080902, end: 20100411
  8. TARCEVA [Suspect]
     Indication: LUNG ADENOCARCINOMA
     Dates: start: 20080703, end: 20080826
  9. CISPLATIN [Suspect]
     Indication: LUNG ADENOCARCINOMA RECURRENT
     Route: 041
     Dates: start: 20100414, end: 20100414
  10. DEXTROMETHORPHAN HYDROBROMIDE [Concomitant]
     Indication: COUGH
     Dosage: AT ANY TIME
     Route: 048
     Dates: start: 20100209

REACTIONS (7)
  - HYPONATRAEMIA [None]
  - MALAISE [None]
  - DECREASED APPETITE [None]
  - RENAL SALT-WASTING SYNDROME [None]
  - CONSTIPATION [None]
  - COUGH [None]
  - ALTERED STATE OF CONSCIOUSNESS [None]
